FAERS Safety Report 9665599 (Version 4)
Quarter: 2014Q1

REPORT INFORMATION
  Report Type: Spontaneous
  Country: US (occurrence: US)
  Receive Date: 20131104
  Receipt Date: 20140114
  Transmission Date: 20141002
  Serious: Yes (Other)
  Sender: FDA-Public Use
  Company Number: US-JNJFOC-20131018892

PATIENT
  Age: 71 Year
  Sex: Female
  Weight: 66.68 kg

DRUGS (13)
  1. REMICADE [Suspect]
     Indication: CROHN^S DISEASE
     Dosage: TOTAL DOSE 400 MG APPROXIMATE NUMBER OF INFUSIONS WAS 59 INFUSIONS, ONCE EVERY 6-8 WEEKS
     Route: 042
     Dates: start: 20050726, end: 20130910
  2. SOLU-MEDROL [Suspect]
     Indication: PRODUCT USED FOR UNKNOWN INDICATION
     Route: 065
  3. SOLU-MEDROL [Suspect]
     Indication: PRODUCT USED FOR UNKNOWN INDICATION
     Dosage: DECREASE TO 40 (UNITS UNSPECIFIED)
     Route: 065
  4. SYMBICORT [Concomitant]
     Dosage: 160-4.5 MG, ACTUATION INHALE 2 PUFFS
     Route: 065
  5. OPTIVAR [Concomitant]
     Dosage: 0.05 % INSTILL 0/1 DROPS IN BOTH EYES AS NECESSARY
     Route: 065
  6. ACTONEL [Concomitant]
     Indication: OSTEOPOROSIS
     Dosage: FREQUENCY WAS 0/1
     Route: 065
  7. APRISO [Concomitant]
     Route: 065
     Dates: start: 20130402
  8. CANASA [Concomitant]
     Dosage: ONE AT BED TIME
     Route: 065
     Dates: start: 20130402
  9. COMBIVENT [Concomitant]
     Dosage: 18-103 MCG/ACTUATION Q4O AS NECESSARY
     Route: 065
  10. CYCLOBENZAPRINE [Concomitant]
     Indication: MUSCLE SPASMS
     Dosage: 0/1 NIGHTLY AS NECESSARY
     Route: 065
  11. VITAMIN D2 [Concomitant]
     Dosage: 50, 000 UNITS 0/1 WEEKLY
     Route: 065
  12. NAPROXEN [Concomitant]
     Dosage: 0/1
     Route: 065
  13. TYLENOL [Concomitant]
     Dosage: 00/11 AS NECESSARY
     Route: 065

REACTIONS (10)
  - Pneumonia [Unknown]
  - Chronic obstructive pulmonary disease [Recovering/Resolving]
  - Restless legs syndrome [Unknown]
  - Pericardial effusion [Unknown]
  - Aortic arteriosclerosis [Unknown]
  - Small cell lung cancer [Not Recovered/Not Resolved]
  - Aortic calcification [Unknown]
  - Cerebral ischaemia [Unknown]
  - Cerebral atrophy [Unknown]
  - Cerebellar atrophy [Unknown]
